FAERS Safety Report 22357166 (Version 1)
Quarter: 2023Q2

REPORT INFORMATION
  Report Type: Report from Study
  Country: DE (occurrence: DE)
  Receive Date: 20230524
  Receipt Date: 20230524
  Transmission Date: 20230721
  Serious: Yes (Death, Hospitalization)
  Sender: FDA-Public Use
  Company Number: DE-ABBVIE-5176435

PATIENT
  Age: 78 Year
  Sex: Male

DRUGS (4)
  1. HUMIRA [Suspect]
     Active Substance: ADALIMUMAB
     Indication: Rheumatoid arthritis
     Route: 058
     Dates: start: 201506, end: 201905
  2. METHOTREXATE SODIUM [Concomitant]
     Active Substance: METHOTREXATE SODIUM
     Indication: Product used for unknown indication
     Dosage: START DATE TEXT: BETWEEN 28 AUG 2014 AND 26 FEB 2015?STOP DATE TEXT: BETWEEN 27 AUG 2015 AND 25 F...
     Route: 065
  3. METHOTREXATE SODIUM [Concomitant]
     Active Substance: METHOTREXATE SODIUM
     Indication: Product used for unknown indication
     Dosage: START DATE TEXT: BEFORE 29 AUG 2013?STOP DATE TEXT: BETWEEN 28 AUG 2014 AND 26 FEB 2015
     Route: 065
  4. LEFLUNOMIDE [Concomitant]
     Active Substance: LEFLUNOMIDE
     Indication: Product used for unknown indication
     Dosage: START DATE TEXT: BETWEEN 5 MAR 2014 AND 28 AUG 2014?STOP DATE TEXT: BETWEEN 26 FEB 2015 AND 27 AU...
     Route: 065

REACTIONS (4)
  - Cerebral haemorrhage [Fatal]
  - Intervertebral discitis [Fatal]
  - Brain oedema [Fatal]
  - Staphylococcal sepsis [Fatal]

NARRATIVE: CASE EVENT DATE: 20210929
